FAERS Safety Report 19787235 (Version 2)
Quarter: 2021Q3

REPORT INFORMATION
  Report Type: Spontaneous
  Country: BR (occurrence: BR)
  Receive Date: 20210903
  Receipt Date: 20210906
  Transmission Date: 20211014
  Serious: Yes (Other)
  Sender: FDA-Public Use
  Company Number: BR-ASTRAZENECA-2021A700373

PATIENT
  Age: 54 Year
  Sex: Male

DRUGS (6)
  1. INALAPRIL [Interacting]
     Active Substance: ENALAPRIL
     Route: 065
  2. CONCOR [Interacting]
     Active Substance: BISOPROLOL FUMARATE
     Route: 065
  3. LIVALO [Interacting]
     Active Substance: PITAVASTATIN CALCIUM
     Route: 065
  4. COLCHICINA [Interacting]
     Active Substance: COLCHICINE
     Route: 065
  5. ASTRAZENECA COVID?19 VACCINE [Suspect]
     Active Substance: AZD-1222
     Route: 030
     Dates: start: 20210520, end: 20210520
  6. NEXIUM [Suspect]
     Active Substance: ESOMEPRAZOLE MAGNESIUM
     Route: 065

REACTIONS (1)
  - Myocarditis [Unknown]

NARRATIVE: CASE EVENT DATE: 20210622
